FAERS Safety Report 4965089-X (Version None)
Quarter: 2006Q1

REPORT INFORMATION
  Report Type: 
  Country: None (occurrence: None)
  Receive Date: 20060201
  Receipt Date: 20051003
  Transmission Date: 20060701
  Serious: No
  Sender: FDA-Public Use
  Company Number: 2005PV002753

PATIENT
  Age: 42 Year
  Sex: Female
  Weight: 103.4201 kg

DRUGS (4)
  1. BYETTA [Suspect]
     Indication: DIABETES MELLITUS NON-INSULIN-DEPENDENT
     Dosage: 5 MCG BID SC
     Route: 058
     Dates: start: 20051001
  2. NOVOLOG MIX 70/30 [Concomitant]
  3. NOVOLIN R [Concomitant]
  4. METFORMIN [Concomitant]

REACTIONS (1)
  - BLOOD GLUCOSE INCREASED [None]
